FAERS Safety Report 15683628 (Version 2)
Quarter: 2020Q2

REPORT INFORMATION
  Report Type: Spontaneous
  Country: CA (occurrence: CA)
  Receive Date: 20181204
  Receipt Date: 20200519
  Transmission Date: 20200713
  Serious: Yes (Hospitalization, Other)
  Sender: FDA-Public Use
  Company Number: CA-ICU MEDICAL, INC.-ICU2018CA00123

PATIENT

DRUGS (2)
  1. MORPHINE SULFATE INJECTION [Suspect]
     Active Substance: MORPHINE SULFATE
     Indication: PRODUCT USED FOR UNKNOWN INDICATION
     Dosage: UNK
     Route: 065
  2. VEDOLIZUMAB [Suspect]
     Active Substance: VEDOLIZUMAB
     Indication: CROHN^S DISEASE
     Dosage: 300 MILLIGRAM (1 EVERY 4 WEEKS)
     Route: 042

REACTIONS (5)
  - Lower respiratory tract infection [Not Recovered/Not Resolved]
  - Crohn^s disease [Not Recovered/Not Resolved]
  - Drug ineffective [Not Recovered/Not Resolved]
  - Drug dependence [Not Recovered/Not Resolved]
  - Off label use [Not Recovered/Not Resolved]
